FAERS Safety Report 6034023-6 (Version None)
Quarter: 2009Q1

REPORT INFORMATION
  Report Type: 
  Country: None (occurrence: None)
  Receive Date: 20090112
  Receipt Date: 20090105
  Transmission Date: 20090719
  Serious: Yes (Hospitalization, Other)
  Sender: FDA-Public Use
  Company Number: US-BIOGENIDEC-2008BI026628

PATIENT
  Age: 35 Year
  Sex: Female

DRUGS (2)
  1. AVONEX [Suspect]
     Indication: MULTIPLE SCLEROSIS
     Route: 030
     Dates: start: 20020101, end: 20030401
  2. AVONEX [Suspect]
     Route: 030
     Dates: start: 20030815

REACTIONS (2)
  - ARNOLD-CHIARI MALFORMATION [None]
  - GRAND MAL CONVULSION [None]
